FAERS Safety Report 11057257 (Version 1)
Quarter: 2015Q2

REPORT INFORMATION
  Report Type: Spontaneous
  Country: US (occurrence: US)
  Receive Date: 20150422
  Receipt Date: 20150422
  Transmission Date: 20150821
  Serious: Yes (Hospitalization)
  Sender: FDA-Public Use
  Company Number: US-MYLANLABS-2015M1012589

PATIENT

DRUGS (1)
  1. MACROGOL [Suspect]
     Active Substance: POLYETHYLENE GLYCOLS
     Dosage: UNK

REACTIONS (1)
  - Urticaria [Not Recovered/Not Resolved]
